FAERS Safety Report 17258403 (Version 2)
Quarter: 2020Q1

REPORT INFORMATION
  Report Type: Spontaneous
  Country: US (occurrence: US)
  Receive Date: 20200110
  Receipt Date: 20200303
  Transmission Date: 20200409
  Serious: Yes (Other)
  Sender: FDA-Public Use
  Company Number: US-PFIZER INC-2020004321

PATIENT

DRUGS (11)
  1. XELJANZ XR [Suspect]
     Active Substance: TOFACITINIB CITRATE
     Indication: RHEUMATOID ARTHRITIS
     Dosage: 11 MG, ONCE A DAY (1 IN 1)
  2. ORENCIA [Suspect]
     Active Substance: ABATACEPT
     Dosage: UNK
  3. HUMIRA [Suspect]
     Active Substance: ADALIMUMAB
     Dosage: UNK
     Route: 058
  4. SULFASALAZINE. [Suspect]
     Active Substance: SULFASALAZINE
     Dosage: 1 G, TWICE A DAY (2 IN 1 DAY)
  5. FOSAMAX [Suspect]
     Active Substance: ALENDRONATE SODIUM
     Dosage: UNK
     Dates: start: 2011, end: 2015
  6. ENBREL [Suspect]
     Active Substance: ETANERCEPT
     Dosage: UNK
  7. METHOTREXATE SODIUM. [Suspect]
     Active Substance: METHOTREXATE SODIUM
     Dosage: 15 MG, WEEKLY (1 IN 1 WEEK)
  8. RITUXAN [Suspect]
     Active Substance: RITUXIMAB
     Dosage: UNK
  9. FOLIC ACID. [Suspect]
     Active Substance: FOLIC ACID
     Dosage: 1.1 G, DAILY (1 IN 1 DAY)
  10. ARAVA [Suspect]
     Active Substance: LEFLUNOMIDE
     Dosage: UNK
  11. ACTEMRA [Suspect]
     Active Substance: TOCILIZUMAB
     Dosage: UNK

REACTIONS (21)
  - Swelling of eyelid [Unknown]
  - Joint swelling [Recovered/Resolved]
  - Vaginal infection [Recovered/Resolved]
  - Arthralgia [Recovered/Resolved]
  - Drug ineffective [Unknown]
  - Cytopenia [Unknown]
  - Nausea [Unknown]
  - Lip swelling [Unknown]
  - Gastrointestinal disorder [Unknown]
  - Asthenia [Unknown]
  - Infection [Unknown]
  - Rash [Unknown]
  - Hypersensitivity [Unknown]
  - Lipids abnormal [Unknown]
  - Fatigue [Unknown]
  - Musculoskeletal stiffness [Recovered/Resolved]
  - Peripheral swelling [Unknown]
  - Paraesthesia [Unknown]
  - Eye pruritus [Unknown]
  - Nervous system disorder [Unknown]
  - Pain in extremity [Unknown]

NARRATIVE: CASE EVENT DATE: 201910
